FAERS Safety Report 5804396-5 (Version None)
Quarter: 2008Q3

REPORT INFORMATION
  Report Type: 
  Country: None (occurrence: None)
  Receive Date: 20080709
  Receipt Date: 20080612
  Transmission Date: 20090109
  Serious: No
  Sender: FDA-Public Use
  Company Number: US-BAYER-200826417NA

PATIENT
  Age: 22 Year
  Sex: Female

DRUGS (2)
  1. MIRENA [Suspect]
     Indication: CONTRACEPTION
     Route: 015
     Dates: start: 20080506
  2. WELLBUTRIN [Concomitant]

REACTIONS (6)
  - ABDOMINAL PAIN [None]
  - GENITAL HAEMORRHAGE [None]
  - MIGRAINE [None]
  - NAUSEA [None]
  - NO ADVERSE EVENT [None]
  - VOMITING [None]
